FAERS Safety Report 7356982 (Version 9)
Quarter: 2012Q4

REPORT INFORMATION
  Report Type: 
  Country: GB (occurrence: GB)
  Receive Date: 20100416
  Receipt Date: 20121228
  Transmission Date: 20130627
  Serious: Yes (Death, Congenital Anomaly, Other)
  Sender: FDA-Public Use
  Company Number: GB-JNJFOC-20100401560

PATIENT
  Age: 0 Year
  Sex: Female
  Weight: 3.41 kg

DRUGS (5)
  1. DARUNAVIR [Suspect]
     Indication: FOETAL EXPOSURE DURING PREGNANCY
     Route: 064
     Dates: start: 20090310
  2. ISENTRESS [Suspect]
     Indication: FOETAL EXPOSURE DURING PREGNANCY
     Route: 064
     Dates: start: 20090319
  3. RITONAVIR [Suspect]
     Indication: FOETAL EXPOSURE DURING PREGNANCY
     Route: 064
     Dates: start: 20090310
  4. ZIDOVUDINE [Suspect]
     Indication: FOETAL EXPOSURE DURING PREGNANCY
     Route: 064
     Dates: start: 20090318
  5. TRUVADA [Suspect]
     Indication: FOETAL EXPOSURE DURING PREGNANCY
     Route: 064

REACTIONS (12)
  - Cardiac arrest [Fatal]
  - Complication of delivery [Unknown]
  - Neonatal respiratory arrest [Fatal]
  - Aortic valve sclerosis [Fatal]
  - Sudden infant death syndrome [Fatal]
  - Pulmonary valve sclerosis [Fatal]
  - Large for dates baby [Unknown]
  - Ventricular hypertrophy [Not Recovered/Not Resolved]
  - Apnoea [Not Recovered/Not Resolved]
  - Cardiac murmur [Not Recovered/Not Resolved]
  - Congenital heart valve disorder [Not Recovered/Not Resolved]
  - Congenital heart valve disorder [Not Recovered/Not Resolved]
